FAERS Safety Report 8206905-8 (Version None)
Quarter: 2012Q1

REPORT INFORMATION
  Report Type: 
  Country: None (occurrence: None)
  Receive Date: 20120314
  Receipt Date: 20120302
  Transmission Date: 20120608
  Serious: Yes (Other)
  Sender: FDA-Public Use
  Company Number: CA-JNJFOC-20120303097

PATIENT
  Sex: Female
  Weight: 71 kg

DRUGS (5)
  1. REMICADE [Suspect]
     Indication: CROHN'S DISEASE
     Dosage: LAST INFUSION
     Route: 042
  2. REMICADE [Suspect]
     Route: 042
     Dates: start: 20120302, end: 20120302
  3. TYLENOL [Concomitant]
     Indication: PREMEDICATION
     Route: 065
  4. BENADRYL [Concomitant]
     Indication: PREMEDICATION
     Route: 042
  5. SOLU-CORTEF [Concomitant]
     Indication: PREMEDICATION
     Route: 065

REACTIONS (7)
  - RENAL PAIN [None]
  - THROAT IRRITATION [None]
  - FLUSHING [None]
  - HYPOAESTHESIA [None]
  - BLOOD PRESSURE INCREASED [None]
  - TREMOR [None]
  - INFUSION RELATED REACTION [None]
